FAERS Safety Report 8062036-1 (Version None)
Quarter: 2012Q1

REPORT INFORMATION
  Report Type: 
  Country: None (occurrence: None)
  Receive Date: 20120117
  Receipt Date: 20120103
  Transmission Date: 20120608
  Serious: Yes (Hospitalization, Disabling)
  Sender: FDA-Public Use
  Company Number: 2011P1010288

PATIENT
  Sex: Female

DRUGS (12)
  1. PEPCID [Suspect]
     Dosage: PO
     Route: 048
     Dates: start: 20090701
  2. PRILOSEC [Suspect]
     Dates: start: 20090901, end: 20090901
  3. LISINOPRIL [Concomitant]
  4. DOCUSATE [Concomitant]
  5. FUROSEMIDE [Concomitant]
  6. PLAVIX [Concomitant]
  7. SPIRONOLACTONE [Concomitant]
  8. OMEPRAZOLE [Suspect]
     Dates: start: 20090901, end: 20090901
  9. AMOXICILLIN [Suspect]
  10. ASPIRIN [Concomitant]
  11. MAALOX (NO PREF. NAME) [Suspect]
     Indication: GASTROOESOPHAGEAL REFLUX DISEASE
  12. LOVASTATIN [Concomitant]

REACTIONS (13)
  - GASTROINTESTINAL DISORDER [None]
  - AGGRESSION [None]
  - MALAISE [None]
  - DRUG HYPERSENSITIVITY [None]
  - UNEVALUABLE EVENT [None]
  - DRUG INEFFECTIVE [None]
  - ELECTROLYTE IMBALANCE [None]
  - DRUG INTOLERANCE [None]
  - DEHYDRATION [None]
  - ABDOMINAL PAIN UPPER [None]
  - APHAGIA [None]
  - DISBACTERIOSIS [None]
  - DECREASED APPETITE [None]
